FAERS Safety Report 21898027 (Version 1)
Quarter: 2023Q1

REPORT INFORMATION
  Report Type: Spontaneous
  Country: FR (occurrence: FR)
  Receive Date: 20230123
  Receipt Date: 20230123
  Transmission Date: 20230418
  Serious: Yes (Other)
  Sender: FDA-Public Use
  Company Number: FR-SAMSUNG BIOEPIS-SB-2023-01369

PATIENT
  Sex: Male

DRUGS (1)
  1. ETANERCEPT [Suspect]
     Active Substance: ETANERCEPT
     Indication: Ankylosing spondylitis
     Dosage: ONE INJECTION EVERY WEEK?THERAPY START DATE: 5 YEARS AGO
     Route: 058

REACTIONS (2)
  - Hepatotoxicity [Unknown]
  - Ill-defined disorder [Unknown]
